FAERS Safety Report 12395812 (Version 1)
Quarter: 2016Q2

REPORT INFORMATION
  Report Type: Other
  Country: IR (occurrence: IR)
  Receive Date: 20160523
  Receipt Date: 20160523
  Transmission Date: 20160815
  Serious: Yes (Hospitalization)
  Sender: FDA-Public Use
  Company Number: IR-PURDUE-DEU-2016-0018002

PATIENT
  Age: 20 Year
  Sex: Male

DRUGS (15)
  1. NON-PMN MORPHINE SULFATE [Suspect]
     Active Substance: MORPHINE SULFATE
     Indication: PRODUCT USED FOR UNKNOWN INDICATION
     Route: 065
  2. MIDAZOLAM [Suspect]
     Active Substance: MIDAZOLAM\MIDAZOLAM HYDROCHLORIDE
     Indication: PRODUCT USED FOR UNKNOWN INDICATION
     Route: 065
  3. PRAZOSIN [Concomitant]
     Active Substance: PRAZOSIN
  4. AMLODIPINE [Concomitant]
     Active Substance: AMLODIPINE BESYLATE
  5. PROPOFOL. [Concomitant]
     Active Substance: PROPOFOL
  6. MEROPENEM. [Concomitant]
     Active Substance: MEROPENEM
  7. TEICOPLANIN [Concomitant]
     Active Substance: TEICOPLANIN
  8. CAPTOPRIL. [Suspect]
     Active Substance: CAPTOPRIL
     Indication: HYPERTENSIVE CRISIS
     Dosage: 25 MG, UNK
     Route: 060
  9. AMIKACIN [Concomitant]
     Active Substance: AMIKACIN
  10. SEVELAMER HYDROCHLORIDE [Concomitant]
     Active Substance: SEVELAMER HYDROCHLORIDE
  11. ERYTHROPOIETIN HUMAN [Concomitant]
  12. FUROSEMIDE. [Concomitant]
     Active Substance: FUROSEMIDE
  13. DEXAMETHASONE. [Concomitant]
     Active Substance: DEXAMETHASONE
     Dosage: 8 MG, TID
  14. HALOPERIDOL. [Concomitant]
     Active Substance: HALOPERIDOL
  15. LOSARTAN. [Concomitant]
     Active Substance: LOSARTAN

REACTIONS (1)
  - Parotitis [Recovering/Resolving]
